FAERS Safety Report 12349861 (Version 1)
Quarter: 2016Q2

REPORT INFORMATION
  Report Type: Spontaneous
  Country: US (occurrence: None)
  Receive Date: 20160509
  Receipt Date: 20160509
  Transmission Date: 20160815
  Serious: Yes (Disabling, Other)
  Sender: FDA-Public Use
  Company Number: None

PATIENT
  Age: 32 Year
  Sex: Female
  Weight: 85.73 kg

DRUGS (2)
  1. MIRENA [Suspect]
     Active Substance: LEVONORGESTREL
     Indication: CONTRACEPTION
     Dates: start: 20160121, end: 20160425
  2. WOMENS ONCE DAILY MULTI VITAMIN [Concomitant]

REACTIONS (6)
  - Depressed mood [None]
  - Irritability [None]
  - Anger [None]
  - Fatigue [None]
  - Loss of libido [None]
  - Lethargy [None]

NARRATIVE: CASE EVENT DATE: 20160121
